FAERS Safety Report 4569304-6 (Version None)
Quarter: 2005Q1

REPORT INFORMATION
  Report Type: 
  Country: None (occurrence: None)
  Receive Date: 20050118
  Receipt Date: 20041020
  Transmission Date: 20050727
  Serious: Yes (Other)
  Sender: FDA-Public Use
  Company Number: HQWYE124127OCT04

PATIENT
  Age: 60 Year
  Sex: Female
  Weight: 57.2 kg

DRUGS (5)
  1. PREMPRO [Suspect]
     Indication: HOT FLUSH
     Dosage: 0.45MG/ 1.5 MG ONCE TABLET DAILY, ORAL
     Route: 048
     Dates: start: 19990101
  2. MAGNESIUM (MAGNESIUM,   ) [Suspect]
  3. VITAMIN C (ASCORBIC ACID) [Concomitant]
  4. VITAMIN E [Concomitant]
  5. ASPIRIN [Concomitant]

REACTIONS (2)
  - VAGINAL DISCHARGE [None]
  - VAGINAL PAIN [None]
